FAERS Safety Report 10640951 (Version 1)
Quarter: 2014Q4

REPORT INFORMATION
  Report Type: Spontaneous
  Country: US (occurrence: None)
  Receive Date: 20141208
  Receipt Date: 20141208
  Transmission Date: 20150529
  Serious: Yes (Other)
  Sender: FDA-Public Use
  Company Number: None

PATIENT
  Age: 26 Year
  Sex: Female
  Weight: 68.04 kg

DRUGS (1)
  1. PARAGARD T380A [Suspect]
     Active Substance: COPPER

REACTIONS (2)
  - Abortion spontaneous [None]
  - Pregnancy with contraceptive device [None]

NARRATIVE: CASE EVENT DATE: 20141202
